FAERS Safety Report 9574814 (Version 1)
Quarter: 2013Q4

REPORT INFORMATION
  Report Type: Spontaneous
  Country: SE (occurrence: SE)
  Receive Date: 20131001
  Receipt Date: 20131001
  Transmission Date: 20140711
  Serious: Yes (Hospitalization)
  Sender: FDA-Public Use
  Company Number: SE-JNJFOC-20130912925

PATIENT
  Age: 69 Year
  Sex: Male

DRUGS (7)
  1. EDURANT [Suspect]
     Indication: HIV INFECTION
     Route: 048
     Dates: start: 20120516, end: 20130614
  2. METFORMIN [Concomitant]
  3. METOPROLOL [Concomitant]
  4. ENALAPRIL [Concomitant]
  5. PRAVASTATIN [Concomitant]
  6. BETAPRED [Concomitant]
  7. MIANSERIN [Concomitant]

REACTIONS (6)
  - Altered state of consciousness [Unknown]
  - Abdominal pain [Recovered/Resolved]
  - Fatigue [Unknown]
  - Dizziness [Recovered/Resolved]
  - Headache [Recovered/Resolved]
  - Depression [Recovered/Resolved]
